FAERS Safety Report 5098113-7 (Version None)
Quarter: 2006Q3

REPORT INFORMATION
  Report Type: 
  Country: None (occurrence: None)
  Receive Date: 20060906
  Receipt Date: 20060413
  Transmission Date: 20061208
  Serious: Yes (Other)
  Sender: FDA-Public Use
  Company Number: US-GLAXOSMITHKLINE-A0601899A

PATIENT
  Age: 80 Year
  Sex: Male

DRUGS (9)
  1. REQUIP [Suspect]
     Indication: PARKINSON'S DISEASE
     Dosage: 1MG THREE TIMES PER DAY
     Route: 048
     Dates: start: 20060309
  2. ARICEPT [Concomitant]
  3. LEVODOPA [Concomitant]
  4. CARBIDOPA [Concomitant]
  5. FISH OIL [Concomitant]
  6. COLACE [Concomitant]
  7. NAMENDA [Concomitant]
  8. VITAMIN [Concomitant]
  9. METAMUCIL [Concomitant]

REACTIONS (4)
  - HALLUCINATION [None]
  - HYPERHIDROSIS [None]
  - NAUSEA [None]
  - SLEEP DISORDER [None]
